FAERS Safety Report 9221611 (Version 1)
Quarter: 2013Q1

REPORT INFORMATION
  Report Type: Spontaneous
  Country: US (occurrence: None)
  Receive Date: 20120831
  Receipt Date: 20120831
  Transmission Date: 20140127
  Serious: No
  Sender: FDA-Public Use
  Company Number: 1000031531

PATIENT
  Age: 67 Year
  Sex: Female
  Weight: 83.4 kg

DRUGS (3)
  1. DALIRESP [Suspect]
     Indication: CHRONIC OBSTRUCTIVE PULMONARY DISEASE
     Dosage: 1 N 1
     Route: 048
     Dates: start: 20120609
  2. VERAPAMIL (VERAPAMIL) (VERAPAMIL) [Concomitant]
  3. NEXIUM [Concomitant]

REACTIONS (6)
  - Weight decreased [None]
  - Musculoskeletal pain [None]
  - Back pain [None]
  - Insomnia [None]
  - Diarrhoea [None]
  - Decreased appetite [None]
